FAERS Safety Report 24602397 (Version 4)
Quarter: 2025Q3

REPORT INFORMATION
  Report Type: Spontaneous
  Country: US (occurrence: US)
  Receive Date: 20241111
  Receipt Date: 20250803
  Transmission Date: 20251021
  Serious: Yes (Other)
  Sender: ALEXION PHARMACEUTICALS
  Company Number: US-AstraZeneca-CH-00726067AP

PATIENT
  Sex: Female

DRUGS (1)
  1. SYMBICORT [Suspect]
     Active Substance: BUDESONIDE\FORMOTEROL FUMARATE DIHYDRATE
     Indication: Product used for unknown indication

REACTIONS (14)
  - Blood pressure increased [Unknown]
  - Cardiac failure [Unknown]
  - Dyspnoea [Unknown]
  - Illness [Unknown]
  - Chronic obstructive pulmonary disease [Unknown]
  - Incorrect dose administered by device [Unknown]
  - Mobility decreased [Unknown]
  - Arthritis [Unknown]
  - Fall [Unknown]
  - Atrophy [Unknown]
  - Eye disorder [Unknown]
  - Device defective [Unknown]
  - Wrong technique in product usage process [Unknown]
  - Device delivery system issue [Unknown]
